FAERS Safety Report 19999581 (Version 1)
Quarter: 2021Q4

REPORT INFORMATION
  Report Type: Spontaneous
  Country: US (occurrence: US)
  Receive Date: 20211026
  Receipt Date: 20211026
  Transmission Date: 20220304
  Serious: No
  Sender: FDA-Public Use
  Company Number: US-SUNOVION-2021SUN003928

PATIENT
  Age: 47 Year
  Sex: Female

DRUGS (1)
  1. LATUDA [Suspect]
     Active Substance: LURASIDONE HYDROCHLORIDE
     Dosage: 200 MG, BID
     Route: 048

REACTIONS (5)
  - Memory impairment [Unknown]
  - Malaise [Unknown]
  - Overdose [Unknown]
  - Off label use [Unknown]
  - Therapy cessation [Unknown]
